FAERS Safety Report 8958929 (Version 3)
Quarter: 2013Q1

REPORT INFORMATION
  Report Type: Spontaneous
  Country: GB (occurrence: GB)
  Receive Date: 20121212
  Receipt Date: 20130213
  Transmission Date: 20140127
  Serious: Yes (Other)
  Sender: FDA-Public Use
  Company Number: GB-AMGEN-GBRSP2012071171

PATIENT
  Age: 33 Year
  Sex: Male
  Weight: 65 kg

DRUGS (3)
  1. NPLATE [Suspect]
     Indication: IDIOPATHIC THROMBOCYTOPENIC PURPURA
     Dosage: 650 MUG, AVERAGE 3-4 WEEKS
     Route: 058
     Dates: start: 20120906
  2. PREDNISOLONE [Concomitant]
  3. IVIGLOB EX [Concomitant]

REACTIONS (4)
  - Therapeutic response decreased [Unknown]
  - Gastrointestinal haemorrhage [Unknown]
  - Platelet count abnormal [Unknown]
  - Pneumonia [Unknown]
